FAERS Safety Report 8812665 (Version 1)
Quarter: 2012Q4

REPORT INFORMATION
  Report Type: 
  Country: US (occurrence: US)
  Receive Date: 20120927
  Receipt Date: 20120927
  Transmission Date: 20130627
  Serious: Yes (Hospitalization, Other)
  Sender: FDA-Public Use
  Company Number: GXBR2012US001952

PATIENT
  Age: 57 None
  Sex: Male
  Weight: 63.49 kg

DRUGS (4)
  1. METHADONE HYDROCHLORIDE [Suspect]
     Indication: NEUROPATHY PERIPHERAL
     Dosage: 10 mg, BID
  2. NEURONTIN [Suspect]
     Indication: NEUROPATHY PERIPHERAL
     Dosage: UNK mg, UNK
  3. LYRICA [Suspect]
     Indication: NEUROPATHY PERIPHERAL
     Dosage: 25mg in morning and middle of day, 100mg at night
  4. KALETRA [Concomitant]
     Indication: HIV INFECTION
     Dosage: 400 mg, BID

REACTIONS (10)
  - Meningitis [Recovered/Resolved]
  - Liver injury [Unknown]
  - Renal injury [Unknown]
  - Renal disorder [Unknown]
  - Tooth disorder [Not Recovered/Not Resolved]
  - Sedation [Unknown]
  - Aspiration [Unknown]
  - Myocardial infarction [Recovered/Resolved]
  - Osteoporosis [Unknown]
  - Body height decreased [Unknown]
